FAERS Safety Report 19112957 (Version 6)
Quarter: 2021Q3

REPORT INFORMATION
  Report Type: Report from Study
  Country: US (occurrence: US)
  Receive Date: 20210408
  Receipt Date: 20210825
  Transmission Date: 20211014
  Serious: No
  Sender: FDA-Public Use
  Company Number: NVSC2021US074345

PATIENT
  Sex: Male

DRUGS (1)
  1. KESIMPTA [Suspect]
     Active Substance: OFATUMUMAB
     Indication: MULTIPLE SCLEROSIS
     Dosage: UNK
     Route: 065

REACTIONS (10)
  - Pain [Unknown]
  - Influenza like illness [Unknown]
  - Rhinorrhoea [Unknown]
  - Product storage error [Unknown]
  - Chills [Unknown]
  - Seasonal allergy [Unknown]
  - Headache [Unknown]
  - Product dose omission issue [Unknown]
  - Acne [Unknown]
  - Product supply issue [Unknown]
